FAERS Safety Report 9029454 (Version 1)
Quarter: 2013Q1

REPORT INFORMATION
  Report Type: Spontaneous
  Country: US (occurrence: US)
  Receive Date: 20130125
  Receipt Date: 20130125
  Transmission Date: 20140127
  Serious: Yes (Death)
  Sender: FDA-Public Use
  Company Number: PHHY2013US006994

PATIENT
  Age: 64 Year
  Sex: Female

DRUGS (21)
  1. DICLOFENAC [Suspect]
     Dosage: UNK UKN, UNK
  2. PANTOPRAZOLE [Suspect]
     Dosage: UNK UKN, UNK
  3. POTASSIUM CHLORIDE [Suspect]
     Dosage: UNK UKN, UNK
  4. DESIPRAMINE [Suspect]
     Dosage: UNK UKN, UNK
  5. DILTIAZEM [Suspect]
     Dosage: UNK UKN, UNK
  6. VENLAFAXINE HYDROCHLORIDE [Suspect]
     Dosage: UNK UKN, UNK
  7. LAMOTRIGINE [Suspect]
     Dosage: UNK UKN, UNK
  8. HYDROCHLOROTHIAZIDE [Suspect]
     Dosage: UNK UKN, UNK
  9. TRIFLUOPERAZINE [Suspect]
     Dosage: UNK UKN, UNK
  10. ESCITALOPRAM [Suspect]
     Dosage: UNK UKN, UNK
  11. LANSOPRAZOLE [Suspect]
     Dosage: UNK UKN, UNK
  12. ROSUVASTATIN [Suspect]
     Dosage: UNK UKN, UNK
  13. NAPROXEN [Suspect]
     Dosage: UNK UKN, UNK
  14. NITROFURANTOIN [Suspect]
     Dosage: UNK UKN, UNK
  15. SOLIFENACIN [Suspect]
     Dosage: UNK UKN, UNK
  16. CIPROFLOXACIN [Suspect]
     Dosage: UNK UKN, UNK
  17. PROGESTIN [Suspect]
     Dosage: UNK UKN, UNK
  18. ACETAMINOPHEN W/PROPOXYPHENE [Suspect]
     Dosage: UNK UKN, UNK
  19. ACETAMINOPHEN W/HYDROCODONE [Suspect]
  20. ARMODAFINIL [Suspect]
     Dosage: UNK UKN, UNK
  21. THYROID PREPARATIONS [Suspect]
     Dosage: UNK UKN, UNK

REACTIONS (1)
  - Completed suicide [Fatal]
